FAERS Safety Report 7624276-2 (Version None)
Quarter: 2011Q3

REPORT INFORMATION
  Report Type: 
  Country: None (occurrence: None)
  Receive Date: 20110720
  Receipt Date: 20110711
  Transmission Date: 20111222
  Serious: Yes (Other)
  Sender: FDA-Public Use
  Company Number: CHPA2011US09114

PATIENT
  Sex: Female
  Weight: 61.224 kg

DRUGS (1)
  1. PREVACID 24 HR [Suspect]
     Indication: DYSPEPSIA
     Dosage: 15 MG, ONCE/SINGLE
     Route: 048
     Dates: start: 20110709, end: 20110709

REACTIONS (10)
  - SWELLING FACE [None]
  - GENERALISED ERYTHEMA [None]
  - PRURITUS [None]
  - EXPIRED DRUG ADMINISTERED [None]
  - HYPERSENSITIVITY [None]
  - EYE SWELLING [None]
  - INCORRECT DRUG ADMINISTRATION DURATION [None]
  - AURICULAR SWELLING [None]
  - OFF LABEL USE [None]
  - FEELING HOT [None]
